FAERS Safety Report 10414538 (Version 3)
Quarter: 2015Q1

REPORT INFORMATION
  Report Type: Report from Study
  Country: AU (occurrence: AU)
  Receive Date: 20140828
  Receipt Date: 20150313
  Transmission Date: 20150720
  Serious: Yes (Hospitalization, Other)
  Sender: FDA-Public Use
  Company Number: AU-BIOGENIDEC-2014BI061002

PATIENT
  Age: 54 Year
  Sex: Female

DRUGS (1)
  1. TECFIDERA [Suspect]
     Active Substance: DIMETHYL FUMARATE
     Indication: MULTIPLE SCLEROSIS
     Route: 048
     Dates: start: 201401, end: 20140728

REACTIONS (11)
  - Ear discomfort [Unknown]
  - Retinal detachment [Unknown]
  - Migraine [Not Recovered/Not Resolved]
  - Visual impairment [Recovered/Resolved with Sequelae]
  - Retinal tear [Recovered/Resolved with Sequelae]
  - Retinal haemorrhage [Unknown]
  - Flushing [Recovered/Resolved]
  - Gastroenteritis viral [Recovered/Resolved]
  - Miliaria [Recovered/Resolved]
  - Headache [Not Recovered/Not Resolved]
  - Insomnia [Unknown]

NARRATIVE: CASE EVENT DATE: 201401
